FAERS Safety Report 19269505 (Version 1)
Quarter: 2021Q2

REPORT INFORMATION
  Report Type: Spontaneous
  Country: US (occurrence: US)
  Receive Date: 20210518
  Receipt Date: 20210518
  Transmission Date: 20210717
  Serious: No
  Sender: FDA-Public Use
  Company Number: None

PATIENT
  Sex: Female
  Weight: 58.97 kg

DRUGS (1)
  1. LUMASON [Suspect]
     Active Substance: SULFUR HEXAFLUORIDE

REACTIONS (7)
  - Hypotension [None]
  - Ventricular tachycardia [None]
  - Atrial fibrillation [None]
  - Hypersensitivity [None]
  - Anaphylactic reaction [None]
  - Cardiac arrest [None]
  - Bradycardia [None]
